FAERS Safety Report 10560558 (Version 5)
Quarter: 2019Q2

REPORT INFORMATION
  Report Type: Report from Study
  Country: US (occurrence: US)
  Receive Date: 20141103
  Receipt Date: 20190530
  Transmission Date: 20190711
  Serious: No
  Sender: FDA-Public Use
  Company Number: US-SA-2014SA105234

PATIENT
  Age: 49 Year
  Sex: Male

DRUGS (5)
  1. ALGLUCOSIDASE ALFA [Suspect]
     Active Substance: ALGLUCOSIDASE ALFA
     Dosage: 20 MG/KG, QOW
     Route: 042
  2. ALGLUCOSIDASE ALFA [Suspect]
     Active Substance: ALGLUCOSIDASE ALFA
     Dosage: 3600 MG, QOW
     Route: 042
  3. ALGLUCOSIDASE ALFA [Suspect]
     Active Substance: ALGLUCOSIDASE ALFA
     Dosage: 2600 MG, QOW
     Route: 042
  4. ALGLUCOSIDASE ALFA [Suspect]
     Active Substance: ALGLUCOSIDASE ALFA
     Dosage: 3600 Q2
     Route: 042
  5. ALGLUCOSIDASE ALFA [Suspect]
     Active Substance: ALGLUCOSIDASE ALFA
     Indication: GLYCOGEN STORAGE DISEASE TYPE II
     Dosage: 2100 MG, QOW
     Route: 042

REACTIONS (5)
  - Unevaluable event [Unknown]
  - Incorrect dose administered [Unknown]
  - Urticaria [Unknown]
  - Incorrect dose administered [Unknown]
  - Device occlusion [Unknown]

NARRATIVE: CASE EVENT DATE: 20140801
